FAERS Safety Report 6875787-9 (Version None)
Quarter: 2010Q3

REPORT INFORMATION
  Report Type: 
  Country: None (occurrence: None)
  Receive Date: 20100727
  Receipt Date: 20100714
  Transmission Date: 20110219
  Serious: Yes (Hospitalization)
  Sender: FDA-Public Use
  Company Number: JP-PFIZER INC-2010087268

PATIENT
  Age: 49 Year
  Sex: Female

DRUGS (7)
  1. ZITHROMAC [Suspect]
     Dosage: 500 MG/DAY
     Route: 048
     Dates: start: 20100628, end: 20100628
  2. SINGULAIR [Concomitant]
     Dosage: UNK
     Dates: start: 20100628, end: 20100628
  3. EMPYNASE [Concomitant]
     Dosage: UNK
     Dates: start: 20100628, end: 20100628
  4. MUCOTRON [Concomitant]
     Dosage: UNK
     Route: 048
     Dates: start: 20100628, end: 20100628
  5. LIGHTGEN [Concomitant]
     Dosage: UNK
     Route: 048
     Dates: start: 20100628, end: 20100628
  6. CLARITHROMYCIN [Concomitant]
  7. AUGMENTIN '125' [Concomitant]

REACTIONS (2)
  - HEPATIC FUNCTION ABNORMAL [None]
  - PYREXIA [None]
